FAERS Safety Report 7130733-8 (Version None)
Quarter: 2010Q4

REPORT INFORMATION
  Report Type: 
  Country: None (occurrence: None)
  Receive Date: 20101029
  Receipt Date: 20100825
  Transmission Date: 20110411
  Serious: Yes (Hospitalization)
  Sender: FDA-Public Use
  Company Number: SE-003511

PATIENT
  Sex: Male
  Weight: 78.2 kg

DRUGS (13)
  1. FIRMAGON [Suspect]
     Indication: PROSTATE CANCER
     Dosage: (240 MG 1X SUBCUTANEOUS), (80 MG 1X/MONTH SUBCUTANEOUS)
     Route: 058
     Dates: start: 20100511, end: 20100511
  2. FIRMAGON [Suspect]
     Indication: PROSTATE CANCER
     Dosage: (240 MG 1X SUBCUTANEOUS), (80 MG 1X/MONTH SUBCUTANEOUS)
     Route: 058
     Dates: start: 20100609
  3. METFORMIN [Concomitant]
  4. FURIX [Concomitant]
  5. ESIDRIX [Concomitant]
  6. SELOKENZOC [Concomitant]
  7. ZESTRIL [Concomitant]
  8. SIMVASTATIN [Concomitant]
  9. TROMBYL [Concomitant]
  10. NITROMEX [Concomitant]
  11. FELODIPINE [Concomitant]
  12. IPREN [Concomitant]
  13. ALVEDON [Concomitant]

REACTIONS (1)
  - GASTROENTERITIS [None]
